FAERS Safety Report 5268358-1 (Version None)
Quarter: 2007Q1

REPORT INFORMATION
  Report Type: 
  Country: None (occurrence: None)
  Receive Date: 20070313
  Receipt Date: 20070308
  Transmission Date: 20070707
  Serious: Yes (Death, Hospitalization)
  Sender: FDA-Public Use
  Company Number: 2007-00602

PATIENT
  Age: 67 Year
  Sex: Female
  Weight: 51 kg

DRUGS (11)
  1. VELCADE [Suspect]
     Indication: MULTIPLE MYELOMA
     Dosage: SEE IMAGE
     Route: 042
     Dates: start: 20060712, end: 20060726
  2. VELCADE [Suspect]
     Indication: MULTIPLE MYELOMA
     Dosage: SEE IMAGE
     Route: 042
     Dates: start: 20060806, end: 20060906
  3. VELCADE [Suspect]
     Indication: MULTIPLE MYELOMA
     Dosage: SEE IMAGE
     Route: 042
     Dates: start: 20060914, end: 20061013
  4. DEXAMETHASONE [Concomitant]
  5. ZOLDERONIC ACID (ZOLEDRONIC ACID) [Concomitant]
  6. AMLODIPINE [Concomitant]
  7. METFORMIN HCL [Concomitant]
  8. CLONAZEPAM [Concomitant]
  9. GABAPENTIN [Concomitant]
  10. ACETAMINOPHEN [Concomitant]
  11. TRAMADOL HCL [Concomitant]

REACTIONS (4)
  - FALL [None]
  - FLANK PAIN [None]
  - PNEUMONIA [None]
  - SEPTIC SHOCK [None]
